FAERS Safety Report 16537909 (Version 1)
Quarter: 2019Q3

REPORT INFORMATION
  Report Type: Spontaneous
  Country: US (occurrence: US)
  Receive Date: 20190708
  Receipt Date: 20190708
  Transmission Date: 20191004
  Serious: Yes (Hospitalization)
  Sender: FDA-Public Use
  Company Number: US-SA-2019SA181058

PATIENT
  Age: 63 Year
  Sex: Female

DRUGS (5)
  1. COUMADIN [Concomitant]
     Active Substance: WARFARIN SODIUM
     Dosage: UNK
  2. ELIQUIS [Concomitant]
     Active Substance: APIXABAN
  3. COUMADIN [Concomitant]
     Active Substance: WARFARIN SODIUM
     Dosage: UNK
  4. KEVZARA [Suspect]
     Active Substance: SARILUMAB
     Dosage: UNK UNK, OTHER
     Route: 058
     Dates: start: 2019
  5. KEVZARA [Suspect]
     Active Substance: SARILUMAB
     Dosage: UNK UNK, OTHER
     Route: 058
     Dates: start: 20190423

REACTIONS (2)
  - Chronic obstructive pulmonary disease [Unknown]
  - Product dose omission [Unknown]

NARRATIVE: CASE EVENT DATE: 2019
